FAERS Safety Report 4607903-3 (Version None)
Quarter: 2005Q1

REPORT INFORMATION
  Report Type: 
  Country: None (occurrence: None)
  Receive Date: 20050310
  Receipt Date: 20050228
  Transmission Date: 20050727
  Serious: Yes (Other)
  Sender: FDA-Public Use
  Company Number: CA-2005-002842

PATIENT
  Age: 49 Year
  Sex: Female

DRUGS (3)
  1. MIRENA [Suspect]
     Indication: MENORRHAGIA
     Dosage: 20 UG/DAY, CONT, INTRA-UTERINE
     Route: 015
     Dates: start: 20041201, end: 20050201
  2. COUMADIN [Concomitant]
  3. ZITHROMAX [Concomitant]

REACTIONS (5)
  - CARDIOVASCULAR DISORDER [None]
  - DISEASE RECURRENCE [None]
  - INTERNATIONAL NORMALISED RATIO DECREASED [None]
  - PHLEBITIS [None]
  - WEIGHT INCREASED [None]
